FAERS Safety Report 21442485 (Version 2)
Quarter: 2022Q4

REPORT INFORMATION
  Report Type: Spontaneous
  Country: US (occurrence: None)
  Receive Date: 20221011
  Receipt Date: 20221108
  Transmission Date: 20230113
  Serious: No
  Sender: FDA-Public Use
  Company Number: 2022A319639

PATIENT
  Age: 25233 Day
  Sex: Female
  Weight: 59.9 kg

DRUGS (1)
  1. PULMICORT FLEXHALER [Suspect]
     Active Substance: BUDESONIDE
     Indication: Asthma
     Dosage: 180.0UG UNKNOWN
     Route: 055

REACTIONS (6)
  - Obstructive airways disorder [Unknown]
  - Hypersensitivity [Unknown]
  - Intentional device misuse [Unknown]
  - Drug delivery system issue [Unknown]
  - Drug ineffective [Unknown]
  - Incorrect dose administered by device [Recovered/Resolved]

NARRATIVE: CASE EVENT DATE: 20220723
